FAERS Safety Report 18432110 (Version 1)
Quarter: 2020Q4

REPORT INFORMATION
  Report Type: Spontaneous
  Country: GB (occurrence: GB)
  Receive Date: 20201027
  Receipt Date: 20201027
  Transmission Date: 20210114
  Serious: Yes (Other)
  Sender: FDA-Public Use
  Company Number: GB-TEVA-2020-GB-1840861

PATIENT
  Age: 74 Year
  Sex: Female
  Weight: 52.61 kg

DRUGS (8)
  1. CIPROFLOXACIN. [Suspect]
     Active Substance: CIPROFLOXACIN
     Indication: CYSTOSCOPY
     Route: 048
     Dates: start: 20200822, end: 20200826
  2. OVESTIN [Concomitant]
     Active Substance: ESTRIOL
  3. D-MANNOSE [Concomitant]
  4. DOSULEPIN HYDROCHLORIDE [Concomitant]
     Active Substance: DOTHIEPIN HYDROCHLORIDE
  5. CARMELLOSE SODIUM [Concomitant]
     Active Substance: CARBOXYMETHYLCELLULOSE SODIUM
  6. AMOXICILLIN TRIHYDRATE [Concomitant]
     Active Substance: AMOXICILLIN
  7. LAXIDO [Concomitant]
     Active Substance: POLYETHYLENE GLYCOL 3350\POTASSIUM CHLORIDE\SODIUM BICARBONATE\SODIUM CHLORIDE
  8. LEVOTHYROXINE SODIUM. [Concomitant]
     Active Substance: LEVOTHYROXINE SODIUM

REACTIONS (5)
  - Arthralgia [Not Recovered/Not Resolved]
  - Hallucination [Unknown]
  - Paraesthesia [Not Recovered/Not Resolved]
  - Myalgia [Unknown]
  - Formication [Not Recovered/Not Resolved]

NARRATIVE: CASE EVENT DATE: 20200825
